FAERS Safety Report 23195441 (Version 1)
Quarter: 2023Q4

REPORT INFORMATION
  Report Type: Spontaneous
  Country: ES (occurrence: ES)
  Receive Date: 20231117
  Receipt Date: 20231117
  Transmission Date: 20240110
  Serious: Yes (Life-Threatening, Hospitalization)
  Sender: FDA-Public Use
  Company Number: ES-JNJFOC-20231141790

PATIENT
  Sex: Female

DRUGS (2)
  1. SPRAVATO [Suspect]
     Active Substance: ESKETAMINE
     Indication: Depression
  2. SPRAVATO [Suspect]
     Active Substance: ESKETAMINE
     Dosage: IN THE MAINTENANCE PHASE
     Dates: start: 20231110, end: 20231110

REACTIONS (3)
  - Suicide attempt [Recovering/Resolving]
  - Surgery [Unknown]
  - Depression [Unknown]

NARRATIVE: CASE EVENT DATE: 20230101
